FAERS Safety Report 9483369 (Version 4)
Quarter: 2013Q4

REPORT INFORMATION
  Report Type: Report from Study
  Country: CA (occurrence: CA)
  Receive Date: 20130828
  Receipt Date: 20131005
  Transmission Date: 20140711
  Serious: Yes (Hospitalization, Other)
  Sender: FDA-Public Use
  Company Number: CA-ROCHE-1225315

PATIENT
  Sex: Female
  Weight: 63 kg

DRUGS (21)
  1. RITUXAN [Suspect]
     Indication: RHEUMATOID ARTHRITIS
     Route: 042
     Dates: start: 20120807, end: 20130226
  2. DIPHENHYDRAMINE HCL [Concomitant]
     Route: 048
     Dates: start: 20120807, end: 20130226
  3. ACETAMINOPHEN [Concomitant]
     Route: 048
     Dates: start: 20120807, end: 20130226
  4. METHYLPREDNISOLONE [Concomitant]
     Route: 042
     Dates: start: 20120807, end: 20130226
  5. ALENDRONATE [Concomitant]
     Route: 065
  6. ELTROXIN [Concomitant]
     Route: 065
  7. LEFLUNOMIDE [Concomitant]
     Route: 065
  8. RAMIPRIL [Concomitant]
     Route: 065
  9. NITRODUR [Concomitant]
     Route: 065
  10. ASA [Concomitant]
     Route: 065
  11. VITAMIN C [Concomitant]
     Route: 065
  12. CEPHALEXIN [Concomitant]
     Route: 065
  13. LASIX [Concomitant]
     Route: 065
  14. LIPITOR [Concomitant]
     Route: 065
  15. METAMUCIL [Concomitant]
     Route: 065
  16. NITROLINGUAL SPRAY [Concomitant]
     Route: 065
  17. OXYCOCET [Concomitant]
     Route: 065
  18. PANTOLOC [Concomitant]
     Route: 065
  19. PLAQUENIL [Concomitant]
     Route: 065
  20. PLAVIX [Concomitant]
     Route: 065
  21. PREDNISONE [Concomitant]
     Route: 065

REACTIONS (2)
  - Drug ineffective [Unknown]
  - Hypokinesia [Unknown]
